FAERS Safety Report 6672990-8 (Version None)
Quarter: 2010Q2

REPORT INFORMATION
  Report Type: 
  Country: None (occurrence: None)
  Receive Date: 20100408
  Receipt Date: 20100329
  Transmission Date: 20101027
  Serious: Yes (Hospitalization)
  Sender: FDA-Public Use
  Company Number: B0638303A

PATIENT
  Sex: Female
  Weight: 102 kg

DRUGS (11)
  1. VALTREX [Suspect]
     Indication: HERPES ZOSTER
     Dosage: 3000MG PER DAY
     Route: 048
     Dates: start: 20100225, end: 20100304
  2. HYPEN [Suspect]
     Indication: DRUG USE FOR UNKNOWN INDICATION
     Dosage: 800MG PER DAY
     Route: 048
     Dates: start: 20100225, end: 20100304
  3. TAXOL [Concomitant]
     Indication: BREAST CANCER
     Dosage: 170MG PER DAY
     Route: 042
     Dates: start: 20100107, end: 20100218
  4. CYCLOPHOSPHAMIDE [Concomitant]
     Indication: BREAST CANCER
     Dosage: 1280MG PER DAY
     Route: 042
     Dates: start: 20090813, end: 20091210
  5. FARMORUBICIN [Concomitant]
     Indication: BREAST CANCER
     Dosage: 160MG PER DAY
     Route: 042
     Dates: start: 20090813, end: 20091219
  6. ADENINE [Concomitant]
     Dosage: 60MG PER DAY
     Route: 048
     Dates: start: 20090819
  7. CEPHARANTHIN [Concomitant]
     Indication: WHITE BLOOD CELL COUNT DECREASED
     Dosage: 6MG PER DAY
     Route: 048
     Dates: start: 20090819
  8. FARESTON [Concomitant]
     Indication: BREAST CANCER
     Dosage: 40MG PER DAY
     Route: 048
     Dates: start: 20100121
  9. FAMOTIDINE [Concomitant]
     Dosage: 80MG PER DAY
     Route: 048
     Dates: start: 20100225, end: 20100304
  10. DECADRON [Concomitant]
     Dosage: 3.3MG PER DAY
     Dates: start: 20100218
  11. ZANTAC [Concomitant]
     Dosage: 50MG PER DAY
     Route: 042

REACTIONS (3)
  - ABSCESS [None]
  - PYREXIA [None]
  - RENAL FAILURE ACUTE [None]
